FAERS Safety Report 19967040 (Version 1)
Quarter: 2021Q4

REPORT INFORMATION
  Report Type: Spontaneous
  Country: BR (occurrence: BR)
  Receive Date: 20211019
  Receipt Date: 20211019
  Transmission Date: 20220303
  Serious: Yes (Other)
  Sender: FDA-Public Use
  Company Number: BR-SUN PHARMACEUTICAL INDUSTRIES LTD-2021R1-313952

PATIENT
  Age: 65 Year
  Sex: Female

DRUGS (1)
  1. PREDNISONE [Suspect]
     Active Substance: PREDNISONE
     Indication: Hypercalcaemia
     Dosage: 60 MILLIGRAM, QD
     Route: 065

REACTIONS (2)
  - Therapy non-responder [Unknown]
  - Renal impairment [Unknown]
